FAERS Safety Report 19190389 (Version 2)
Quarter: 2021Q3

REPORT INFORMATION
  Report Type: Report from Study
  Country: FR (occurrence: FR)
  Receive Date: 20210428
  Receipt Date: 20210726
  Transmission Date: 20211014
  Serious: Yes (Hospitalization)
  Sender: FDA-Public Use
  Company Number: FR-JNJFOC-20210319514

PATIENT
  Age: 54 Year
  Sex: Male

DRUGS (14)
  1. SPRAVATO [Suspect]
     Active Substance: ESKETAMINE
     Dates: start: 20210528, end: 20210630
  2. NARDIL [Concomitant]
     Active Substance: PHENELZINE SULFATE
     Indication: ANTIDEPRESSANT THERAPY
     Dates: start: 20200323, end: 20200917
  3. PREGABALINE [Concomitant]
     Active Substance: PREGABALIN
     Dates: start: 20180911
  4. SPRAVATO [Suspect]
     Active Substance: ESKETAMINE
     Indication: DEPRESSION
     Dates: start: 20200504, end: 20200719
  5. SPRAVATO [Suspect]
     Active Substance: ESKETAMINE
     Dates: start: 20201207, end: 20201207
  6. SPRAVATO [Suspect]
     Active Substance: ESKETAMINE
     Dates: start: 20201211, end: 20210102
  7. SPRAVATO [Suspect]
     Active Substance: ESKETAMINE
     Dates: start: 20200904, end: 20201204
  8. SPRAVATO [Suspect]
     Active Substance: ESKETAMINE
     Dates: start: 20210505, end: 20210521
  9. SELEGILINE [Concomitant]
     Active Substance: SELEGILINE
     Indication: ANTIDEPRESSANT THERAPY
     Dates: start: 20201022
  10. SPRAVATO [Suspect]
     Active Substance: ESKETAMINE
     Dates: start: 20210208, end: 20210421
  11. THYROID T3 [Concomitant]
     Indication: POTENTIATING DRUG INTERACTION
     Dates: start: 20200302, end: 20200610
  12. SPRAVATO [Suspect]
     Active Substance: ESKETAMINE
     Dates: start: 20210428, end: 20210428
  13. SPRAVATO [Suspect]
     Active Substance: ESKETAMINE
     Dates: start: 20200904, end: 20201204
  14. LITHIUM. [Concomitant]
     Active Substance: LITHIUM
     Indication: POTENTIATING DRUG INTERACTION
     Dates: start: 20200323

REACTIONS (1)
  - Drug ineffective [Recovered/Resolved]

NARRATIVE: CASE EVENT DATE: 20200903
